FAERS Safety Report 20025799 (Version 1)
Quarter: 2021Q4

REPORT INFORMATION
  Report Type: Spontaneous
  Country: US (occurrence: US)
  Receive Date: 20211102
  Receipt Date: 20211102
  Transmission Date: 20220303
  Serious: Yes (Life-Threatening, Hospitalization)
  Sender: FDA-Public Use
  Company Number: US-INNOCOLL PHARMACEUTICALS LIMITED-2021INN00004

PATIENT
  Sex: Female

DRUGS (5)
  1. BUPIVACAINE [Suspect]
     Active Substance: BUPIVACAINE
     Indication: Pain
     Dosage: 8 ML, ONCE
     Route: 008
  2. LIDOCAINE [Suspect]
     Active Substance: LIDOCAINE
     Indication: Pain
     Dosage: 2 ML, ONCE
     Route: 061
  3. LIDOCAINE [Suspect]
     Active Substance: LIDOCAINE
     Dosage: 20 ML - INJECTION
     Route: 065
  4. IOHEXOL [Concomitant]
     Active Substance: IOHEXOL
     Dosage: 1 ML, ONCE AT 180 MG IODINE/ML
     Route: 065
  5. EPINEPHRINE [Concomitant]
     Active Substance: EPINEPHRINE
     Route: 065

REACTIONS (8)
  - Local anaesthetic systemic toxicity [Recovered/Resolved]
  - Bundle branch block left [Recovered/Resolved]
  - Tachycardia [Recovered/Resolved]
  - Hypertension [Recovered/Resolved]
  - Tachypnoea [Recovered/Resolved]
  - Acute respiratory failure [Recovered/Resolved]
  - Hyporesponsive to stimuli [Recovered/Resolved]
  - Circulatory collapse [Recovered/Resolved]
